FAERS Safety Report 7886439 (Version 3)
Quarter: 2016Q1

REPORT INFORMATION
  Report Type: Spontaneous
  Country: FR (occurrence: FR)
  Receive Date: 20110405
  Receipt Date: 20160120
  Transmission Date: 20160526
  Serious: Yes (Other)
  Sender: FDA-Public Use
  Company Number: FR-BRISTOL-MYERS SQUIBB COMPANY-15649601

PATIENT
  Age: 37 Year
  Sex: Female
  Weight: 60 kg

DRUGS (5)
  1. HEPT A MYL [Suspect]
     Active Substance: HEPTAMINOL HYDROCHLORIDE
     Indication: ORTHOSTATIC HYPERTENSION
     Dosage: 2 DF, QD
     Route: 048
     Dates: start: 2010
  2. NOCTRAN [Suspect]
     Active Substance: ACEPROMAZINE MALEATE\ACEPROMETAZINE\CLORAZEPATE DIPOTASSIUM
     Indication: INSOMNIA
     Dosage: 10 MG, UNK
     Route: 048
     Dates: start: 201004
  3. DEPAMIDE [Suspect]
     Active Substance: VALPROMIDE
     Indication: MOOD SWINGS
     Dosage: 1200 MG, QD
     Route: 048
     Dates: end: 20110314
  4. ABILIFY [Suspect]
     Active Substance: ARIPIPRAZOLE
     Indication: BIPOLAR DISORDER
     Dosage: 1 DF, QD
     Route: 048
     Dates: start: 20101216, end: 20110314
  5. LARGACTIL [Suspect]
     Active Substance: CHLORPROMAZINE
     Indication: ANXIETY
     Dosage: 1 DF, QD
     Route: 048
     Dates: start: 2007

REACTIONS (2)
  - Abortion induced [Unknown]
  - Maternal exposure during pregnancy [Recovered/Resolved]

NARRATIVE: CASE EVENT DATE: 20110322
